FAERS Safety Report 19704031 (Version 1)
Quarter: 2021Q3

REPORT INFORMATION
  Report Type: Spontaneous
  Country: US (occurrence: US)
  Receive Date: 20210813
  Receipt Date: 20210813
  Transmission Date: 20211014
  Serious: No
  Sender: FDA-Public Use
  Company Number: None

PATIENT
  Age: 5 Year
  Sex: Female
  Weight: 15 kg

DRUGS (2)
  1. AMOXICILLIN AND CLAVULANATE POTASSIUM [Suspect]
     Active Substance: AMOXICILLIN\CLAVULANATE POTASSIUM
  2. AMOXICILLIN?CLAVULANATE ORAL SUSPENSION [Concomitant]
     Dates: start: 20210806, end: 20210812

REACTIONS (1)
  - Product reconstitution quality issue [None]

NARRATIVE: CASE EVENT DATE: 20210806
